FAERS Safety Report 10729492 (Version 2)
Quarter: 2015Q1

REPORT INFORMATION
  Report Type: Spontaneous
  Country: US (occurrence: US)
  Receive Date: 20150122
  Receipt Date: 20150128
  Transmission Date: 20150721
  Serious: Yes (Other)
  Sender: FDA-Public Use
  Company Number: US-BAYER-2015-008212

PATIENT
  Age: 55 Year
  Sex: Female
  Weight: 122.45 kg

DRUGS (2)
  1. ALEVE [Suspect]
     Active Substance: NAPROXEN SODIUM
     Indication: SCIATICA
     Dosage: UNK
  2. ALEVE [Suspect]
     Active Substance: NAPROXEN SODIUM
     Indication: OSTEOARTHRITIS
     Dosage: 1-2 DF EVERY 6-8 HOURS
     Route: 048

REACTIONS (3)
  - Extra dose administered [Unknown]
  - Incorrect drug administration duration [Unknown]
  - Drug dependence [Unknown]
